FAERS Safety Report 5206725-2 (Version None)
Quarter: 2006Q4

REPORT INFORMATION
  Report Type: 
  Country: None (occurrence: None)
  Receive Date: 20061030
  Receipt Date: 20060914
  Transmission Date: 20070319
  Serious: No
  Sender: FDA-Public Use
  Company Number: 256985

PATIENT
  Age: 53 Year
  Sex: Male
  Weight: 77.1 kg

DRUGS (5)
  1. LEVEMIR [Suspect]
     Indication: INSULIN-REQUIRING TYPE II DIABETES MELLITUS
     Dosage: 34 IU, QD, SUBCUTANEOUS
     Route: 058
     Dates: start: 20060803, end: 20060817
  2. LEVEMIR [Suspect]
     Indication: INSULIN-REQUIRING TYPE II DIABETES MELLITUS
     Dosage: 34 IU, QD, SUBCUTANEOUS
     Route: 058
     Dates: start: 20060818
  3. HUMALOG  /00030501 (INSULIN) [Concomitant]
  4. LISINOPRIL [Concomitant]
  5. LIPITOR [Concomitant]

REACTIONS (2)
  - BLOOD GLUCOSE INCREASED [None]
  - DIPLOPIA [None]
